FAERS Safety Report 13075842 (Version 2)
Quarter: 2017Q1

REPORT INFORMATION
  Report Type: Spontaneous
  Country: US (occurrence: US)
  Receive Date: 20161230
  Receipt Date: 20170119
  Transmission Date: 20170428
  Serious: Yes (Hospitalization, Other)
  Sender: FDA-Public Use
  Company Number: US-SAOL THERAPEUTICS-2016SAO01193

PATIENT
  Age: 55 Year
  Sex: Female
  Weight: 46.3 kg

DRUGS (3)
  1. KEPPRA [Concomitant]
     Active Substance: LEVETIRACETAM
     Dosage: 750 MG, 2X/DAY
  2. LIORESAL [Suspect]
     Active Substance: BACLOFEN
     Indication: MULTIPLE SCLEROSIS
  3. LIORESAL [Suspect]
     Active Substance: BACLOFEN
     Indication: MUSCLE SPASTICITY
     Dosage: 200 ?G, \DAY
     Route: 037
     Dates: start: 20010327

REACTIONS (2)
  - Multiple sclerosis [Unknown]
  - Status epilepticus [Unknown]

NARRATIVE: CASE EVENT DATE: 20161122
